FAERS Safety Report 7192026-2 (Version None)
Quarter: 2010Q4

REPORT INFORMATION
  Report Type: 
  Country: None (occurrence: None)
  Receive Date: 20101223
  Receipt Date: 20101202
  Transmission Date: 20110411
  Serious: Yes (Hospitalization)
  Sender: FDA-Public Use
  Company Number: JP-BAYER-2010-001888

PATIENT
  Age: 71 Year
  Sex: Male

DRUGS (1)
  1. NEXAVAR [Suspect]
     Dosage: 400 MG, QD
     Route: 048
     Dates: start: 20101122, end: 20101127

REACTIONS (3)
  - DECREASED APPETITE [None]
  - HEPATIC ENCEPHALOPATHY [None]
  - VOMITING [None]
